FAERS Safety Report 23243961 (Version 1)
Quarter: 2023Q4

REPORT INFORMATION
  Report Type: Report from Study
  Country: US (occurrence: None)
  Receive Date: 20231130
  Receipt Date: 20231130
  Transmission Date: 20240109
  Serious: Yes (Death)
  Sender: FDA-Public Use
  Company Number: 2023A269162

PATIENT
  Sex: Female
  Weight: 65.3 kg

DRUGS (12)
  1. CALQUENCE [Suspect]
     Active Substance: ACALABRUTINIB
     Indication: Chronic lymphocytic leukaemia
     Route: 048
     Dates: start: 20220613
  2. ATORVASTATIN [Concomitant]
     Active Substance: ATORVASTATIN
  3. CLONIDINE [Concomitant]
     Active Substance: CLONIDINE
  4. DILTIAZEM [Concomitant]
     Active Substance: DILTIAZEM
  5. ELIQUIS [Concomitant]
     Active Substance: APIXABAN
  6. FERROUS GLUCONATE [Concomitant]
     Active Substance: FERROUS GLUCONATE
  7. FUROSEMIDE [Concomitant]
     Active Substance: FUROSEMIDE
  8. JANUVIA [Concomitant]
     Active Substance: SITAGLIPTIN PHOSPHATE
  9. LATANOPROST [Concomitant]
     Active Substance: LATANOPROST
  10. OLMESARTAN [Concomitant]
     Active Substance: OLMESARTAN
  11. RESERVISION AREDS [Concomitant]
  12. VITAMIN B12 [Concomitant]
     Active Substance: CYANOCOBALAMIN

REACTIONS (1)
  - Death [Fatal]
